FAERS Safety Report 8506535-4 (Version None)
Quarter: 2012Q3

REPORT INFORMATION
  Report Type: 
  Country: None (occurrence: None)
  Receive Date: 20120712
  Receipt Date: 20120515
  Transmission Date: 20120928
  Serious: No
  Sender: FDA-Public Use
  Company Number: US-GLAXOSMITHKLINE-A0977692A

PATIENT
  Age: 75 Year
  Sex: Male

DRUGS (12)
  1. SIMVASTATIN [Concomitant]
  2. VITAMIN D [Concomitant]
  3. JALYN [Suspect]
     Indication: BENIGN PROSTATIC HYPERPLASIA
     Dosage: 1CAP PER DAY
     Route: 048
     Dates: start: 20120404, end: 20120505
  4. FISH OIL [Concomitant]
  5. GINKGO BILOBA [Concomitant]
  6. LUTEIN [Concomitant]
  7. COQ10 [Concomitant]
  8. DOXYCYCLINE [Concomitant]
  9. HYDROCHLOROTHIAZIDE [Concomitant]
  10. LISINOPRIL [Concomitant]
  11. MAGNESIUM WITH CHELATED ZINC [Concomitant]
  12. VITAMIN B COMPLEX WITH B12 [Concomitant]

REACTIONS (1)
  - BLOOD PRESSURE DECREASED [None]
